FAERS Safety Report 8887604 (Version 1)
Quarter: 2012Q4

REPORT INFORMATION
  Report Type: Spontaneous
  Country: US (occurrence: None)
  Receive Date: 20121101
  Receipt Date: 20121101
  Transmission Date: 20130627
  Serious: Yes (Life-Threatening)
  Sender: FDA-Public Use
  Company Number: None

PATIENT
  Age: 52 Year
  Sex: Female
  Weight: 72.12 kg

DRUGS (1)
  1. AZATHIOPRINE [Suspect]
     Indication: ULCERATIVE COLITIS
     Route: 048
     Dates: start: 20090101, end: 20121030

REACTIONS (2)
  - Deep vein thrombosis [None]
  - Pulmonary embolism [None]
